FAERS Safety Report 4755517-7 (Version None)
Quarter: 2005Q3

REPORT INFORMATION
  Report Type: 
  Country: None (occurrence: None)
  Receive Date: 20050830
  Receipt Date: 20050503
  Transmission Date: 20060218
  Serious: Yes (Other)
  Sender: FDA-Public Use
  Company Number: US-BRISTOL-MYERS SQUIBB COMPANY-12954624

PATIENT
  Age: 13 Year
  Sex: Male
  Weight: 63 kg

DRUGS (3)
  1. ABILIFY [Suspect]
     Dosage: INC TO 15 MG/DAY
     Dates: start: 20050126
  2. LITHIUM [Concomitant]
  3. CONCERTA [Concomitant]

REACTIONS (2)
  - AGGRESSION [None]
  - ANGER [None]
